FAERS Safety Report 16150507 (Version 19)
Quarter: 2020Q2

REPORT INFORMATION
  Report Type: Report from Study
  Country: US (occurrence: US)
  Receive Date: 20190402
  Receipt Date: 20200420
  Transmission Date: 20200713
  Serious: Yes (Hospitalization)
  Sender: FDA-Public Use
  Company Number: US-ACTELION-A-US2019-188456

PATIENT
  Age: 54 Year
  Sex: Female
  Weight: 51.7 kg

DRUGS (7)
  1. VELETRI [Suspect]
     Active Substance: EPOPROSTENOL
     Dosage: 5.8 NG/KG, PER MIN
     Route: 042
  2. VELETRI [Suspect]
     Active Substance: EPOPROSTENOL
     Dosage: 5.15 NG/KG, PER MIN
     Route: 042
  3. OPSUMIT [Suspect]
     Active Substance: MACITENTAN
     Indication: PULMONARY ARTERIAL HYPERTENSION
     Dosage: UNK
     Route: 048
     Dates: start: 20190311, end: 20191029
  4. VELETRI [Suspect]
     Active Substance: EPOPROSTENOL
     Indication: PULMONARY ARTERIAL HYPERTENSION
     Dosage: 5.65 NG/KG, PER MIN
     Route: 042
  5. VELETRI [Suspect]
     Active Substance: EPOPROSTENOL
     Dosage: 4 NG/KG, PER MIN
     Route: 042
  6. SILDENAFIL. [Concomitant]
     Active Substance: SILDENAFIL
  7. DIGOXIN. [Concomitant]
     Active Substance: DIGOXIN

REACTIONS (34)
  - Lung transplant [Recovered/Resolved]
  - Back pain [Unknown]
  - Malaise [Unknown]
  - Crying [Unknown]
  - Nausea [Unknown]
  - Catheter site erythema [Unknown]
  - Pulse abnormal [Recovering/Resolving]
  - Headache [Unknown]
  - Upper respiratory tract infection [Recovered/Resolved]
  - Nasal congestion [Recovered/Resolved]
  - Heart rate decreased [Unknown]
  - Echocardiogram abnormal [Unknown]
  - Chest pain [Not Recovered/Not Resolved]
  - Pulmonary hypertension [Unknown]
  - Palpitations [Unknown]
  - Catheter site rash [Recovering/Resolving]
  - Pain in jaw [Unknown]
  - Dyspnoea exertional [Not Recovered/Not Resolved]
  - Blood creatine phosphokinase MB increased [Unknown]
  - Vision blurred [Unknown]
  - Hypersensitivity [Unknown]
  - Tachycardia [Not Recovered/Not Resolved]
  - Throat irritation [Unknown]
  - Catheter site discharge [Unknown]
  - Eye pain [Unknown]
  - Feeling abnormal [Unknown]
  - Dyspnoea [Recovered/Resolved]
  - Seasonal allergy [Unknown]
  - Oxygen saturation decreased [Unknown]
  - Middle ear effusion [Not Recovered/Not Resolved]
  - Chest discomfort [Recovered/Resolved]
  - Oedema peripheral [Unknown]
  - Catheter site bruise [Unknown]
  - Catheter site pruritus [Unknown]

NARRATIVE: CASE EVENT DATE: 201902
